FAERS Safety Report 4847661-0 (Version None)
Quarter: 2005Q4

REPORT INFORMATION
  Report Type: 
  Country: None (occurrence: None)
  Receive Date: 20051205
  Receipt Date: 20050922
  Transmission Date: 20060501
  Serious: Yes (Hospitalization)
  Sender: FDA-Public Use
  Company Number: 2005051753

PATIENT
  Age: 6 Year
  Sex: Female
  Weight: 14.14 kg

DRUGS (5)
  1. GENOTROPIN [Suspect]
     Indication: SMALL FOR DATES BABY
     Dosage: SEE IMAGE
     Route: 058
     Dates: start: 20020516, end: 20030507
  2. GENOTROPIN [Suspect]
     Indication: SMALL FOR DATES BABY
     Dosage: SEE IMAGE
     Route: 058
     Dates: start: 20030508, end: 20031107
  3. GENOTROPIN [Suspect]
     Indication: SMALL FOR DATES BABY
     Dosage: SEE IMAGE
     Route: 058
     Dates: start: 20031108, end: 20041112
  4. GENOTROPIN [Suspect]
     Indication: SMALL FOR DATES BABY
     Dosage: SEE IMAGE
     Route: 058
     Dates: start: 20041113, end: 20050328
  5. GENOTROPIN [Suspect]
     Indication: SMALL FOR DATES BABY
     Dosage: SEE IMAGE
     Route: 058
     Dates: start: 20050401

REACTIONS (2)
  - OTITIS MEDIA [None]
  - TONSILLAR DISORDER [None]
